FAERS Safety Report 11892069 (Version 2)
Quarter: 2016Q1

REPORT INFORMATION
  Report Type: Spontaneous
  Country: TR (occurrence: TR)
  Receive Date: 20160106
  Receipt Date: 20160205
  Transmission Date: 20160526
  Serious: Yes (Life-Threatening, Hospitalization, Other)
  Sender: FDA-Public Use
  Company Number: TR-JNJFOC-20151226019

PATIENT
  Age: 32 Year
  Sex: Female

DRUGS (1)
  1. DUROGESIC [Suspect]
     Active Substance: FENTANYL
     Indication: ARTHRALGIA
     Dosage: 3 PATCHES
     Route: 062

REACTIONS (6)
  - Electrocardiogram T wave abnormal [Unknown]
  - Troponin increased [Unknown]
  - Cardio-respiratory arrest [Recovered/Resolved]
  - Toxicity to various agents [Unknown]
  - Intentional product misuse [Unknown]
  - Drug diversion [Unknown]
